FAERS Safety Report 6839008-5 (Version None)
Quarter: 2010Q3

REPORT INFORMATION
  Report Type: 
  Country: None (occurrence: None)
  Receive Date: 20100713
  Receipt Date: 20081006
  Transmission Date: 20110219
  Serious: No
  Sender: FDA-Public Use
  Company Number: US-PFIZER INC-2007045951

PATIENT
  Sex: Female
  Weight: 81.65 kg

DRUGS (17)
  1. CHANTIX [Suspect]
     Indication: SMOKING CESSATION THERAPY
     Route: 048
     Dates: start: 20070518
  2. ALL OTHER THERAPEUTIC PRODUCTS [Suspect]
  3. VALIUM [Concomitant]
     Indication: SLEEP DISORDER
  4. SEROQUEL [Concomitant]
     Indication: BIPOLAR I DISORDER
  5. SEROQUEL [Concomitant]
     Indication: SLEEP DISORDER
  6. ABILIFY [Concomitant]
  7. CODEINE [Concomitant]
  8. LAMICTAL [Concomitant]
  9. TEMAZEPAM [Concomitant]
  10. WELLBUTRIN XL [Concomitant]
  11. PHENTERMINE [Concomitant]
  12. SERTRALINE HCL [Concomitant]
  13. DIAZEPAM [Concomitant]
  14. LIPITOR [Concomitant]
  15. SIMVASTATIN [Concomitant]
  16. ROZEREM [Concomitant]
  17. ZOLOFT [Concomitant]

REACTIONS (3)
  - DYSGEUSIA [None]
  - MIDDLE INSOMNIA [None]
  - TONGUE DRY [None]
